FAERS Safety Report 9776689 (Version 4)
Quarter: 2025Q1

REPORT INFORMATION
  Report Type: Spontaneous
  Country: JP (occurrence: JP)
  Receive Date: 20131220
  Receipt Date: 20250313
  Transmission Date: 20250409
  Serious: Yes (Hospitalization)
  Sender: ABBVIE
  Company Number: JP-ABBVIE-13P-087-1180863-00

PATIENT
  Age: 75 Year
  Sex: Female
  Weight: 43 kg

DRUGS (38)
  1. HUMIRA [Suspect]
     Active Substance: ADALIMUMAB
     Indication: Rheumatoid arthritis
     Dosage: STRENGTH: 40 MG LAST ADMIN DATE AUG 2023
     Route: 058
     Dates: start: 20130809
  2. HUMIRA [Suspect]
     Active Substance: ADALIMUMAB
     Dosage: STRENGTH: 40 MG LAST ADMIN DATE 2023
     Route: 058
     Dates: start: 20130823
  3. HUMIRA [Suspect]
     Active Substance: ADALIMUMAB
     Dosage: STRENGTH: 40 MG LAST ADMIN DATE NOV 2023
     Route: 058
     Dates: start: 20130903
  4. HUMIRA [Suspect]
     Active Substance: ADALIMUMAB
     Dosage: STRENGTH: 40 MG
     Route: 058
     Dates: start: 20130920, end: 20131127
  5. HUMIRA [Suspect]
     Active Substance: ADALIMUMAB
     Dosage: STRENGTH: 40 MG LAST ADMIN DATE OCT 2023
     Route: 058
     Dates: start: 20131002
  6. HUMIRA [Suspect]
     Active Substance: ADALIMUMAB
     Dosage: STRENGTH: 40 MG LAST ADMIN DATE OCT 2023
     Route: 058
     Dates: start: 20131016
  7. HUMIRA [Suspect]
     Active Substance: ADALIMUMAB
     Dosage: STRENGTH: 40 MG LAST ADMIN DATE 2023
     Route: 058
     Dates: start: 20131030
  8. HUMIRA [Suspect]
     Active Substance: ADALIMUMAB
     Dosage: STRENGTH: 40 MG LAST ADMIN DATE NOV 2023
     Route: 058
     Dates: start: 20131113
  9. HUMIRA [Suspect]
     Active Substance: ADALIMUMAB
     Dosage: STRENGTH: 40 MG
     Route: 058
     Dates: start: 20131127, end: 20131127
  10. RHEUMATREX [Suspect]
     Active Substance: METHOTREXATE SODIUM
     Indication: Rheumatoid arthritis
     Route: 048
     Dates: start: 20120718, end: 20120918
  11. RHEUMATREX [Suspect]
     Active Substance: METHOTREXATE SODIUM
     Indication: Rheumatoid arthritis
     Route: 048
     Dates: start: 20120919, end: 20130122
  12. RHEUMATREX [Suspect]
     Active Substance: METHOTREXATE SODIUM
     Indication: Rheumatoid arthritis
     Route: 048
     Dates: start: 20130123, end: 20130611
  13. RHEUMATREX [Suspect]
     Active Substance: METHOTREXATE SODIUM
     Indication: Rheumatoid arthritis
     Route: 048
     Dates: start: 20130612, end: 20131203
  14. LOXOPROFEN SODIUM DIHYDRATE [Suspect]
     Active Substance: LOXOPROFEN SODIUM DIHYDRATE
     Indication: Rheumatoid arthritis
     Dosage: EVERY 0.5 DAYS, 2 TABLET
     Route: 048
     Dates: start: 20120718, end: 20131210
  15. PREDNISOLONE [Suspect]
     Active Substance: PREDNISOLONE
     Indication: Rheumatoid arthritis
     Dosage: STRENGTH: 3 MG
     Route: 048
     Dates: start: 20120822, end: 20121113
  16. PREDNISOLONE [Suspect]
     Active Substance: PREDNISOLONE
     Indication: Rheumatoid arthritis
     Dosage: STRENGTH:1 MG
     Route: 048
     Dates: start: 20120801, end: 20120821
  17. PREDNISOLONE [Suspect]
     Active Substance: PREDNISOLONE
     Indication: Rheumatoid arthritis
     Dosage: STRENGTH: 2 MG
     Route: 048
     Dates: start: 20121114, end: 20131113
  18. FOLIC ACID [Concomitant]
     Active Substance: FOLIC ACID
     Indication: Rheumatoid arthritis
     Route: 048
     Dates: start: 20120718, end: 20131203
  19. LOSARTAN POTASSIUM [Concomitant]
     Active Substance: LOSARTAN POTASSIUM
     Indication: Hypertension
     Dosage: STRENGTH: 25 MG
     Route: 048
     Dates: start: 20120718, end: 20131211
  20. LANSOPRAZOLE [Concomitant]
     Active Substance: LANSOPRAZOLE
     Indication: Gastrooesophageal reflux disease
     Dosage: STRENGTH FORM: 15 MG
     Route: 048
     Dates: start: 20120718, end: 20131211
  21. CILNIDIPINE [Concomitant]
     Active Substance: CILNIDIPINE
     Indication: Hypertension
     Dosage: STRENGTH: 10 MG
     Route: 048
     Dates: start: 20130306, end: 20131211
  22. MINOCYCLINE HYDROCHLORIDE [Suspect]
     Active Substance: MINOCYCLINE HYDROCHLORIDE
     Indication: Tonsillitis
     Route: 048
     Dates: start: 20131204, end: 20131211
  23. AUGMENTIN [Suspect]
     Active Substance: AMOXICILLIN\CLAVULANATE POTASSIUM
     Indication: Tonsillitis
     Dosage: 1000 MILLIGRAM
     Route: 048
     Dates: start: 20131209, end: 20131211
  24. UROKINASE [Concomitant]
     Active Substance: UROKINASE
     Indication: Deep vein thrombosis
     Dosage: 2 DOSAGE FORMS
     Route: 041
     Dates: start: 20130319, end: 20130327
  25. WARFARIN POTASSIUM [Concomitant]
     Active Substance: WARFARIN POTASSIUM
     Indication: Deep vein thrombosis
     Dosage: STRENGTH: 1 MG
     Route: 048
     Dates: start: 20130401, end: 20131211
  26. SODIUM HYALURONATE [Concomitant]
     Active Substance: HYALURONATE SODIUM
     Indication: Periarthritis
     Route: 014
     Dates: start: 20121017, end: 20130313
  27. ISONIAZID [Concomitant]
     Active Substance: ISONIAZID
     Indication: Latent tuberculosis
     Route: 048
     Dates: start: 20130807, end: 20131211
  28. HEPARIN [Concomitant]
     Active Substance: HEPARIN SODIUM
     Indication: Deep vein thrombosis
     Dosage: 1 DOSAGE FORMS
     Route: 058
     Dates: start: 20130319, end: 20130401
  29. MAGNESIUM OXIDE [Concomitant]
     Active Substance: MAGNESIUM OXIDE
     Indication: Constipation
     Dosage: 0.4 UNKNOWN
     Route: 048
     Dates: start: 20130416, end: 20131211
  30. BIFIDOBACTERIUM LONGUM [Concomitant]
     Active Substance: BIFIDOBACTERIUM LONGUM
     Indication: Constipation
     Dosage: 0.4 UNKNOWN
     Route: 048
     Dates: start: 20130416, end: 20131211
  31. ELCATONIN [Concomitant]
     Active Substance: ELCATONIN
     Indication: Rheumatoid arthritis
     Dosage: 20 UNKNOWN
     Route: 030
     Dates: start: 20130920
  32. TRIAMCINOLONE ACETONIDE [Concomitant]
     Active Substance: TRIAMCINOLONE ACETONIDE
     Indication: Rheumatoid arthritis
     Dosage: STRENGTH: 40 MG
     Route: 030
     Dates: start: 20121031
  33. TRIAMCINOLONE ACETONIDE [Concomitant]
     Active Substance: TRIAMCINOLONE ACETONIDE
     Indication: Rheumatoid arthritis
     Dosage: STRENGTH: 1 ML??LAST ADMIN DATE 2013
     Route: 030
     Dates: start: 20130123
  34. TRIAMCINOLONE ACETONIDE [Concomitant]
     Active Substance: TRIAMCINOLONE ACETONIDE
     Indication: Rheumatoid arthritis
     Dosage: STRENGTH: 1 ML??LAST ADMIN DATE 2013
     Route: 014
     Dates: start: 20130321
  35. TRIAMCINOLONE ACETONIDE [Concomitant]
     Active Substance: TRIAMCINOLONE ACETONIDE
     Indication: Rheumatoid arthritis
     Dosage: STRENGTH: 40 MG??LAST ADMIN DATE 2013
     Route: 030
     Dates: start: 20130612
  36. TRIAMCINOLONE ACETONIDE [Concomitant]
     Active Substance: TRIAMCINOLONE ACETONIDE
     Indication: Rheumatoid arthritis
     Dosage: STRENGTH: 1 ML??LAST ADMIN DATE 2013
     Route: 014
     Dates: start: 20130807
  37. PREDONINE [Concomitant]
     Active Substance: PREDNISOLONE
     Indication: Rheumatoid arthritis
     Dosage: 5 MILLIGRAM
     Route: 048
     Dates: start: 20120718, end: 20120731
  38. PREDONINE [Concomitant]
     Active Substance: PREDNISOLONE
     Indication: Rheumatoid arthritis
     Route: 048
     Dates: start: 20131217

REACTIONS (10)
  - Acute hepatic failure [Recovered/Resolved]
  - Tonsillitis [Recovered/Resolved]
  - Yellow skin [Unknown]
  - Vomiting [Unknown]
  - Tonsillar hypertrophy [Recovered/Resolved]
  - Hepatitis B reactivation [Recovered/Resolved]
  - Hepatitis [Recovered/Resolved]
  - Malaise [Unknown]
  - Tonsillar erythema [Recovered/Resolved]
  - Urticaria [Unknown]

NARRATIVE: CASE EVENT DATE: 20131201
